FAERS Safety Report 16303278 (Version 2)
Quarter: 2019Q2

REPORT INFORMATION
  Report Type: Report from Study
  Country: None (occurrence: US)
  Receive Date: 20190513
  Receipt Date: 20190625
  Transmission Date: 20190711
  Serious: Yes (Other)
  Sender: FDA-Public Use
  Company Number: US-ABBVIE-19K-163-2780017-00

PATIENT
  Sex: Male
  Weight: 77.18 kg

DRUGS (2)
  1. HUMIRA [Suspect]
     Active Substance: ADALIMUMAB
     Indication: PSORIASIS
     Route: 058
  2. HUMIRA [Suspect]
     Active Substance: ADALIMUMAB
     Route: 058

REACTIONS (9)
  - Postoperative wound infection [Recovered/Resolved]
  - Abdominal wound dehiscence [Unknown]
  - Device breakage [Unknown]
  - Postoperative wound infection [Unknown]
  - Hernia [Recovered/Resolved]
  - Incision site impaired healing [Unknown]
  - Injection site pain [Unknown]
  - Hernia [Recovered/Resolved]
  - Abdominal operation [Unknown]

NARRATIVE: CASE EVENT DATE: 2017
